FAERS Safety Report 7584196-9 (Version None)
Quarter: 2011Q2

REPORT INFORMATION
  Report Type: 
  Country: None (occurrence: None)
  Receive Date: 20110630
  Receipt Date: 20100917
  Transmission Date: 20111010
  Serious: No
  Sender: FDA-Public Use
  Company Number: US-ABBOTT-10P-163-0618356-00

PATIENT
  Age: 55 Year
  Sex: Male

DRUGS (1)
  1. NORVIR [Suspect]
     Indication: HIV TEST POSITIVE
     Dosage: UNKNOWN DOSE

REACTIONS (2)
  - INCORRECT PRODUCT STORAGE [None]
  - TREATMENT FAILURE [None]
